FAERS Safety Report 25362806 (Version 1)
Quarter: 2025Q2

REPORT INFORMATION
  Report Type: Spontaneous
  Country: US (occurrence: None)
  Receive Date: 20250525
  Receipt Date: 20250525
  Transmission Date: 20250717
  Serious: Yes (Other)
  Sender: FDA-CTU
  Company Number: None

PATIENT
  Age: 51 Year
  Sex: Female

DRUGS (1)
  1. ENOXAPARIN SODIUM [Suspect]
     Active Substance: ENOXAPARIN SODIUM
     Dosage: 0.6 ML TWICE A DAY SUBCUTANEOUS
     Route: 058
     Dates: start: 20250424

REACTIONS (2)
  - Injection site pain [None]
  - Haematoma [None]

NARRATIVE: CASE EVENT DATE: 20250525
